FAERS Safety Report 19780757 (Version 6)
Quarter: 2022Q1

REPORT INFORMATION
  Report Type: Spontaneous
  Country: IT (occurrence: IT)
  Receive Date: 20210902
  Receipt Date: 20220330
  Transmission Date: 20220423
  Serious: Yes (Hospitalization)
  Sender: FDA-Public Use
  Company Number: NVSC2021IT193847

PATIENT
  Age: 50 Year
  Sex: Female
  Weight: 60 kg

DRUGS (15)
  1. PACLITAXEL [Suspect]
     Active Substance: PACLITAXEL
     Indication: Breast cancer
     Dosage: 90 MG/M2,(DATE OF MOST RECENT DOSE OF PACLITAXEL (130 MG) PRIOR TO SAE ONSET: 23JUL/2021)
     Route: 042
     Dates: start: 20210409, end: 20210819
  2. PACLITAXEL [Suspect]
     Active Substance: PACLITAXEL
     Dosage: 130 MG, TIW DATE OF MOST RECENT DOSE OF PACLITAXEL (130 MG) PRIOR TO SAE ONSET: 23JUL/2021
     Route: 042
     Dates: start: 20210409, end: 20210819
  3. PACLITAXEL [Suspect]
     Active Substance: PACLITAXEL
     Dosage: UNK
     Route: 065
  4. CARBOPLATIN [Suspect]
     Active Substance: CARBOPLATIN
     Indication: Breast cancer
     Dosage: UNK, Q3W (DATE OF MOST RECENT DOSE OF CARBOPLATIN (180 MG) PRIOR TO SAE ONSET: 23JUL/2021)
     Route: 042
     Dates: start: 20210409, end: 20210819
  5. CARBOPLATIN [Suspect]
     Active Substance: CARBOPLATIN
     Dosage: 180 MG DATE OF MOST RECENT DOSE OF CARBOPLATIN (180 MG) PRIOR TO SAE ONSET: 23JUL/2021IL 23/JULY/202
     Route: 042
     Dates: start: 20210409, end: 20210819
  6. TRASTUZUMAB [Suspect]
     Active Substance: TRASTUZUMAB
     Indication: Breast cancer
     Dosage: 348 MG, Q3W DATE OF MOST RECENT DOSE OF TRASTUZUMAB (348 MG) PRIOR TO SAE ONSET: 16/JUL/2021IL 16/JU
     Route: 041
     Dates: start: 20210409
  7. TRASTUZUMAB [Suspect]
     Active Substance: TRASTUZUMAB
     Dosage: UNK, Q3W (RECENT DOSE (348 MG) PRIOR TO SAE ONSET: 16JUL2021 6 MG/KG MAINTAIN DOSE)
     Route: 041
  8. ATEZOLIZUMAB [Suspect]
     Active Substance: ATEZOLIZUMAB
     Indication: Breast cancer
     Dosage: 1200 MG, Q3W DATE OF MOST RECENT DOSE OF ATEZOLIZUMAB (1200 MG) PRIOR TO SAE ONSET: 16/JUL/2021
     Route: 041
     Dates: start: 20210409, end: 20210819
  9. ACETAMINOPHEN\CODEINE PHOSPHATE [Concomitant]
     Active Substance: ACETAMINOPHEN\CODEINE PHOSPHATE
     Indication: Pain
     Dosage: UNK
     Route: 065
     Dates: start: 20210330, end: 20210809
  10. IBUPROFEN [Concomitant]
     Active Substance: IBUPROFEN
     Indication: Pain
     Dosage: UNK
     Route: 065
     Dates: start: 20210330, end: 20210809
  11. IBUPROFEN [Concomitant]
     Active Substance: IBUPROFEN
     Dosage: UNK
     Route: 065
     Dates: start: 20210809, end: 20210812
  12. PERTUZUMAB [Concomitant]
     Active Substance: PERTUZUMAB
     Indication: Breast cancer
     Dosage: 840 MG, Q3W (DATE OF MOST RECENT DOSE OF PERTUZUMAB (420 MG) PRIOR TO SAE ONSET: 16/JUL/2021)
     Route: 042
     Dates: start: 20210409
  13. PERTUZUMAB [Concomitant]
     Active Substance: PERTUZUMAB
     Dosage: UNK, Q3W  (DATE OF MOST RECENT DOSE OF (420 MG) PRIOR TO SAE ONSET: 16JUL2021 420 MG MAINTAIN DOSE))
     Route: 042
  14. ACETAMINOPHEN [Concomitant]
     Active Substance: ACETAMINOPHEN
     Indication: Pain
     Dosage: UNK
     Route: 065
     Dates: start: 20210330, end: 20210809
  15. PARACETAMOL AND IBUPROFEN [Concomitant]
     Indication: Pain
     Dosage: UNK
     Route: 065
     Dates: start: 20210809, end: 20210812

REACTIONS (1)
  - Renal failure [Recovered/Resolved]

NARRATIVE: CASE EVENT DATE: 20210812
